FAERS Safety Report 20182353 (Version 2)
Quarter: 2021Q4

REPORT INFORMATION
  Report Type: Spontaneous
  Country: US (occurrence: US)
  Receive Date: 20211214
  Receipt Date: 20211217
  Transmission Date: 20220303
  Serious: Yes (Other)
  Sender: FDA-Public Use
  Company Number: US-PFIZER INC-202101713537

PATIENT
  Age: 36 Year
  Sex: Male

DRUGS (1)
  1. GENTAMICIN SULFATE [Suspect]
     Active Substance: GENTAMICIN SULFATE
     Indication: Brucellosis
     Dosage: UNK

REACTIONS (1)
  - Balance disorder [Recovered/Resolved]
